FAERS Safety Report 4843727-X (Version None)
Quarter: 2005Q4

REPORT INFORMATION
  Report Type: 
  Country: None (occurrence: None)
  Receive Date: 20051202
  Receipt Date: 20051014
  Transmission Date: 20060501
  Serious: Yes (Hospitalization)
  Sender: FDA-Public Use
  Company Number: PHBS2005JP15317

PATIENT
  Age: 72 Year
  Sex: Male
  Weight: 47 kg

DRUGS (1)
  1. VOLTAREN [Suspect]
     Indication: PERIARTHRITIS
     Dosage: 2 PATCH/DAY
     Route: 062
     Dates: start: 20051012, end: 20051012

REACTIONS (7)
  - DIZZINESS [None]
  - GENERALISED ERYTHEMA [None]
  - HYPOTENSION [None]
  - MALAISE [None]
  - OXYGEN SATURATION DECREASED [None]
  - PRURITUS [None]
  - URTICARIA GENERALISED [None]
